FAERS Safety Report 5491382-0 (Version None)
Quarter: 2007Q4

REPORT INFORMATION
  Report Type: 
  Country: None (occurrence: None)
  Receive Date: 20071018
  Receipt Date: 20071002
  Transmission Date: 20080405
  Serious: Yes (Hospitalization)
  Sender: FDA-Public Use
  Company Number: ACO_00389_2007

PATIENT
  Sex: Female

DRUGS (4)
  1. TERNELIN                                (TERNELIN - TIZANIDINE HYDROCH [Suspect]
     Indication: DRUG USE FOR UNKNOWN INDICATION
     Dosage: (3 MG QD ORAL)
     Route: 048
  2. LORCAM [Concomitant]
  3. CANDESARTAN CILEXETIL [Concomitant]
  4. TRICHLORMETHIAZIDE [Concomitant]

REACTIONS (2)
  - DYSARTHRIA [None]
  - SPINAL COLUMN STENOSIS [None]
